FAERS Safety Report 23276978 (Version 1)
Quarter: 2023Q4

REPORT INFORMATION
  Report Type: Spontaneous
  Country: US (occurrence: None)
  Receive Date: 20231207
  Receipt Date: 20231207
  Transmission Date: 20240109
  Serious: No
  Sender: FDA-Public Use
  Company Number: None

PATIENT
  Sex: Female

DRUGS (3)
  1. XELJANZ XR [Suspect]
     Active Substance: TOFACITINIB CITRATE
     Indication: Rheumatoid arthritis
     Dosage: 11MG DAILY BY MOUTH
     Route: 048
     Dates: start: 202102
  2. AUSTEDO XR [Concomitant]
     Active Substance: DEUTETRABENAZINE
  3. INGREZZA [Concomitant]

REACTIONS (3)
  - Drug ineffective [None]
  - Arthralgia [None]
  - Rheumatoid arthritis [None]
